FAERS Safety Report 10087020 (Version 2)
Quarter: 2014Q2

REPORT INFORMATION
  Report Type: Spontaneous
  Country: KE (occurrence: KE)
  Receive Date: 20140418
  Receipt Date: 20140502
  Transmission Date: 20141212
  Serious: Yes (Death, Hospitalization)
  Sender: FDA-Public Use
  Company Number: KE-JNJFOC-20140410861

PATIENT
  Age: 75 Year
  Sex: Female

DRUGS (8)
  1. XARELTO [Suspect]
     Indication: ATRIAL FIBRILLATION
     Route: 048
     Dates: start: 201311
  2. XARELTO [Suspect]
     Indication: CEREBROVASCULAR ACCIDENT PROPHYLAXIS
     Route: 048
     Dates: start: 201311
  3. NEBIVOLOL [Concomitant]
     Indication: CARDIAC FAILURE
     Route: 065
  4. ALDACTONE [Concomitant]
     Indication: CARDIAC FAILURE
     Route: 065
  5. LASIX [Concomitant]
     Indication: CARDIAC FAILURE
     Route: 065
  6. GLIMEPRID [Concomitant]
     Indication: DIABETES MELLITUS
     Route: 065
  7. GLUCOPHAGE [Concomitant]
     Indication: DIABETES MELLITUS
     Route: 065
  8. CALCIUM [Concomitant]
     Route: 065

REACTIONS (2)
  - Purpura [Fatal]
  - Ecchymosis [Unknown]
